FAERS Safety Report 9442311 (Version 1)
Quarter: 2013Q3

REPORT INFORMATION
  Report Type: Spontaneous
  Country: US (occurrence: US)
  Receive Date: 20130806
  Receipt Date: 20130806
  Transmission Date: 20140515
  Serious: No
  Sender: FDA-Public Use
  Company Number: US-GLAXOSMITHKLINE-A1000339A

PATIENT
  Age: 75 Year
  Sex: Female

DRUGS (12)
  1. ADVAIR [Suspect]
     Indication: ASTHMA
     Dosage: 2PUFF TWICE PER DAY
     Route: 055
     Dates: start: 2011
  2. PRO-AIR [Suspect]
     Dosage: 2PUFF TWICE PER DAY
     Dates: end: 20121107
  3. POLYETHYLENE GLYCOL [Concomitant]
  4. NORTRIPTYLINE [Concomitant]
  5. LOVASTATIN [Concomitant]
  6. ISOSORBIDE [Concomitant]
  7. PRILOSEC [Concomitant]
  8. BUSPIRONE [Concomitant]
  9. GABAPENTIN [Concomitant]
  10. METHOCARBAMOL [Concomitant]
  11. LEVOTHYROXINE [Concomitant]
  12. VERAPAMIL [Concomitant]

REACTIONS (1)
  - Pruritus generalised [Not Recovered/Not Resolved]
